FAERS Safety Report 21294700 (Version 1)
Quarter: 2022Q3

REPORT INFORMATION
  Report Type: Spontaneous
  Country: BR (occurrence: BR)
  Receive Date: 20220905
  Receipt Date: 20220905
  Transmission Date: 20221027
  Serious: Yes (Other)
  Sender: FDA-Public Use
  Company Number: BR-LUNDBECK-DKLU3051963

PATIENT
  Sex: Male
  Weight: 48 kg

DRUGS (1)
  1. ESCITALOPRAM OXALATE [Suspect]
     Active Substance: ESCITALOPRAM OXALATE
     Indication: Product used for unknown indication
     Dosage: 40MG DAILY
     Route: 048

REACTIONS (11)
  - Hepatic encephalopathy [Recovered/Resolved]
  - Choking [Unknown]
  - Hiccups [Unknown]
  - Fall [Unknown]
  - Balance disorder [Unknown]
  - Limb injury [Unknown]
  - Chromaturia [Unknown]
  - Jaundice [Unknown]
  - Inappropriate schedule of product administration [Unknown]
  - Overdose [Unknown]
  - Coordination abnormal [Unknown]

NARRATIVE: CASE EVENT DATE: 20220307
